FAERS Safety Report 8085309-5 (Version None)
Quarter: 2012Q1

REPORT INFORMATION
  Report Type: 
  Country: None (occurrence: None)
  Receive Date: 20120128
  Receipt Date: 20110315
  Transmission Date: 20120608
  Serious: No
  Sender: FDA-Public Use
  Company Number: US-ABBOTT-11P-163-0711818-00

PATIENT
  Age: 64 Year
  Sex: Male

DRUGS (7)
  1. HUMIRA [Suspect]
     Indication: PSORIATIC ARTHROPATHY
     Dates: start: 20081201
  2. SPIRIVA [Concomitant]
     Indication: CHRONIC OBSTRUCTIVE PULMONARY DISEASE
  3. ALLOPURINOL [Concomitant]
     Indication: BLOOD URIC ACID
  4. PREDNISONE TAB [Concomitant]
     Indication: DYSPNOEA
  5. RELAFEN [Concomitant]
     Indication: ARTHRITIS
  6. LISINOPRIL [Concomitant]
     Indication: BLOOD PRESSURE
  7. CRESTOR [Concomitant]
     Indication: BLOOD CHOLESTEROL INCREASED

REACTIONS (2)
  - MOBILITY DECREASED [None]
  - ARTHRALGIA [None]
